FAERS Safety Report 12959632 (Version 1)
Quarter: 2016Q4

REPORT INFORMATION
  Report Type: Spontaneous
  Country: US (occurrence: US)
  Receive Date: 20161118
  Receipt Date: 20161118
  Transmission Date: 20170207
  Serious: No
  Sender: FDA-Public Use
  Company Number: None

PATIENT
  Age: 54 Year
  Sex: Female
  Weight: 63 kg

DRUGS (11)
  1. TURMERIC [Concomitant]
     Active Substance: TURMERIC
  2. VITAMIN B12 [Concomitant]
     Active Substance: CYANOCOBALAMIN
  3. MAG [Concomitant]
  4. TOPIRAMATE. [Concomitant]
     Active Substance: TOPIRAMATE
  5. ZOLEDRONIC [Suspect]
     Active Substance: ZOLEDRONIC ACID
     Indication: OSTEOPOROSIS
     Route: 042
  6. LACTUS BACILLUS [Concomitant]
  7. FIBER [Concomitant]
     Active Substance: PSYLLIUM HUSK
  8. VITAMIN D [Concomitant]
     Active Substance: CHOLECALCIFEROL
  9. FROVA [Concomitant]
     Active Substance: FROVATRIPTAN SUCCINATE
  10. MVI [Concomitant]
     Active Substance: VITAMINS
  11. ZINC [Concomitant]
     Active Substance: ZINC\ZINC CHLORIDE

REACTIONS (7)
  - Influenza like illness [None]
  - Abdominal rigidity [None]
  - Pyrexia [None]
  - Oropharyngeal pain [None]
  - Internal haemorrhage [None]
  - Flank pain [None]
  - Vomiting [None]

NARRATIVE: CASE EVENT DATE: 20161115
